FAERS Safety Report 21021068 (Version 3)
Quarter: 2022Q3

REPORT INFORMATION
  Report Type: Spontaneous
  Country: FR (occurrence: FR)
  Receive Date: 20220629
  Receipt Date: 20220727
  Transmission Date: 20221027
  Serious: Yes (Hospitalization, Other)
  Sender: FDA-Public Use
  Company Number: FR-AFSSAPS-AM20221571

PATIENT
  Age: 86 Year
  Sex: Female
  Weight: 64.1 kg

DRUGS (13)
  1. GALANTAMINE [Suspect]
     Active Substance: GALANTAMINE
     Indication: Cognitive disorder
     Dosage: 1 DOSAGE FORM, ONCE A DAY
     Route: 048
     Dates: end: 20220522
  2. MIANSERIN [Suspect]
     Active Substance: MIANSERIN
     Indication: Anxiety
     Dosage: 10 MILLIGRAM, ONCE A DAY
     Route: 048
     Dates: start: 202007
  3. MANIDIPINE [Suspect]
     Active Substance: MANIDIPINE
     Indication: Hypertension
     Dosage: 1 DOSAGE FORM, ONCE A DAY
     Route: 048
     Dates: end: 202205
  4. OXAZEPAM [Suspect]
     Active Substance: OXAZEPAM
     Indication: Anxiety
     Dosage: 30 MILLIGRAM, ONCE A DAY
     Route: 048
     Dates: start: 202007
  5. MICARDIS [Suspect]
     Active Substance: TELMISARTAN
     Indication: Hypertension
     Dosage: 1 DOSAGE FORM, ONCE A DAY
     Route: 048
  6. KARDEGIC [Suspect]
     Active Substance: ASPIRIN DL-LYSINE
     Indication: Transient ischaemic attack
     Dosage: 160 MILLIGRAM, ONCE A DAY
     Route: 048
     Dates: start: 202007, end: 20220522
  7. REMINYL [Suspect]
     Active Substance: GALANTAMINE
     Indication: Cognitive disorder
     Dosage: 1 DOSAGE FORM, ONCE A DAY
     Route: 048
  8. LYRICA [Suspect]
     Active Substance: PREGABALIN
     Indication: Anxiety
     Dosage: 25 MILLIGRAM, ONCE A DAY
     Route: 048
     Dates: end: 20220522
  9. LYRICA [Suspect]
     Active Substance: PREGABALIN
     Dosage: 1 DOSAGE FORM, ONCE A DAY
     Route: 048
     Dates: end: 20220522
  10. ACETAMINOPHEN [Concomitant]
     Active Substance: ACETAMINOPHEN
     Indication: Product used for unknown indication
     Dosage: UNK
     Route: 065
  11. LETROZOLE [Concomitant]
     Active Substance: LETROZOLE
     Indication: Product used for unknown indication
     Dosage: UNK
     Route: 065
  12. CHOLECALCIFEROL [Concomitant]
     Active Substance: CHOLECALCIFEROL
     Indication: Product used for unknown indication
     Dosage: UNK
     Route: 065
  13. GALANTAMINE HYDROBROMIDE [Concomitant]
     Active Substance: GALANTAMINE HYDROBROMIDE
     Indication: Product used for unknown indication
     Dosage: 1 DOSAGE FORM QD
     Route: 048
     Dates: start: 20220522

REACTIONS (2)
  - Cerebral haemorrhage [Recovering/Resolving]
  - Fall [Recovering/Resolving]

NARRATIVE: CASE EVENT DATE: 20220501
